FAERS Safety Report 5481113-2 (Version None)
Quarter: 2007Q4

REPORT INFORMATION
  Report Type: 
  Country: None (occurrence: None)
  Receive Date: 20071003
  Receipt Date: 20070924
  Transmission Date: 20080405
  Serious: Yes (Hospitalization)
  Sender: FDA-Public Use
  Company Number: 062-20785-07091562

PATIENT
  Age: 69 Year
  Sex: Male
  Weight: 90 kg

DRUGS (9)
  1. THALIDOMIDE [Suspect]
     Indication: MULTIPLE MYELOMA
     Dosage: 200 MG, QD, ORAL
     Route: 048
     Dates: start: 20070518, end: 20070917
  2. DEXAMETHASONE TAB [Suspect]
     Indication: MULTIPLE MYELOMA
     Dosage: 40 MG, X4 DAYS Q3WEEKS, ORAL
     Route: 048
     Dates: start: 20070518
  3. ISOSORBIT MONITRATE (ISOSRBIDE MONONITRATE) [Concomitant]
  4. MOLSIDOMIN (MOLDSIDOMIN) [Concomitant]
  5. ALLOPURINOL [Concomitant]
  6. DICLOFENAC (DICLOFENAC) [Concomitant]
  7. UNACID (UNACID) [Concomitant]
  8. METRONIDAZOLE [Concomitant]
  9. ANTIHYPERTENSIVE [Concomitant]

REACTIONS (2)
  - GENERALISED OEDEMA [None]
  - PULMONARY EMBOLISM [None]
